FAERS Safety Report 21598727 (Version 1)
Quarter: 2022Q4

REPORT INFORMATION
  Report Type: Spontaneous
  Country: US (occurrence: None)
  Receive Date: 20221115
  Receipt Date: 20221115
  Transmission Date: 20230113
  Serious: Yes (Hospitalization, Other)
  Sender: FDA-Public Use
  Company Number: None

PATIENT
  Age: 46 Year
  Sex: Male
  Weight: 74.6 kg

DRUGS (1)
  1. YESCARTA [Suspect]
     Active Substance: AXICABTAGENE CILOLEUCEL
     Dosage: OTHER FREQUENCY : ONCE;?
     Route: 041

REACTIONS (5)
  - Febrile neutropenia [None]
  - Neurotoxicity [None]
  - Chronic rhinosinusitis without nasal polyps [None]
  - Encephalopathy [None]
  - Seizure [None]

NARRATIVE: CASE EVENT DATE: 20221027
